FAERS Safety Report 14539396 (Version 1)
Quarter: 2018Q1

REPORT INFORMATION
  Report Type: Report from Study
  Country: US (occurrence: US)
  Receive Date: 20180216
  Receipt Date: 20180216
  Transmission Date: 20180509
  Serious: Yes (Other)
  Sender: FDA-Public Use
  Company Number: US-BAYER-2018-011878

PATIENT
  Age: 58 Year
  Sex: Male

DRUGS (2)
  1. STIVARGA [Suspect]
     Active Substance: REGORAFENIB
     Indication: HEPATOCELLULAR CARCINOMA
     Dosage: AT TIMES TAKING 80 MG OR 120 MG INSTEAD OF 160 MG DAILY
     Route: 048
     Dates: start: 2018
  2. STIVARGA [Suspect]
     Active Substance: REGORAFENIB
     Indication: HEPATOCELLULAR CARCINOMA
     Dosage: DAILY DOSE 160 MG (FOR 3 WEEKS ON/ ONE WEEK OFF)
     Route: 048
     Dates: start: 20180113, end: 2018

REACTIONS (29)
  - Feeding disorder [None]
  - Decreased appetite [None]
  - Emergency care [None]
  - Bowel movement irregularity [None]
  - Perforation [None]
  - Chest injury [None]
  - Rib fracture [None]
  - Abdominal pain upper [None]
  - Abdominal pain lower [None]
  - Memory impairment [None]
  - Intentional product use issue [None]
  - Musculoskeletal chest pain [Recovering/Resolving]
  - Hepatic pain [None]
  - Blood pressure increased [None]
  - Abdominal discomfort [None]
  - Tongue discolouration [None]
  - Faeces discoloured [None]
  - Glossodynia [None]
  - Tongue ulceration [None]
  - Abdominal pain upper [None]
  - Constipation [None]
  - Dysphonia [None]
  - Tenderness [Recovering/Resolving]
  - Pyrexia [None]
  - Dry mouth [None]
  - Gastrointestinal pain [None]
  - Nausea [None]
  - Early satiety [None]
  - Tongue discomfort [None]

NARRATIVE: CASE EVENT DATE: 2018
